FAERS Safety Report 5777290-6 (Version None)
Quarter: 2008Q2

REPORT INFORMATION
  Report Type: 
  Country: None (occurrence: None)
  Receive Date: 20080618
  Receipt Date: 20080616
  Transmission Date: 20081010
  Serious: Yes (Death)
  Sender: FDA-Public Use
  Company Number: FR-BRISTOL-MYERS SQUIBB COMPANY-14192256

PATIENT
  Age: 48 Year
  Sex: Male
  Weight: 102 kg

DRUGS (4)
  1. ABILIFY [Suspect]
     Indication: SCHIZOPHRENIA
     Route: 048
     Dates: start: 20080115
  2. RISPERDAL [Suspect]
     Indication: SCHIZOPHRENIA
     Route: 030
     Dates: start: 20060215
  3. LOXAPINE HCL [Suspect]
     Indication: DELUSION
     Route: 048
     Dates: start: 20061101
  4. LOXAPINE HCL [Suspect]
     Indication: SCHIZOPHRENIA
     Route: 048
     Dates: start: 20061101

REACTIONS (1)
  - MYOCARDIAL INFARCTION [None]
